FAERS Safety Report 6112007-7 (Version None)
Quarter: 2009Q1

REPORT INFORMATION
  Report Type: 
  Country: None (occurrence: None)
  Receive Date: 20090310
  Receipt Date: 20090226
  Transmission Date: 20090719
  Serious: Yes (Death)
  Sender: FDA-Public Use
  Company Number: US025541

PATIENT
  Age: 75 Year
  Sex: Female

DRUGS (9)
  1. ACTIQ [Suspect]
     Indication: CANCER PAIN
     Dosage: BUCCAL
     Route: 002
  2. DURAGESIC-100 [Suspect]
     Indication: CANCER PAIN
     Dosage: 450 UG Q1HR TRANSDERMAL
     Route: 062
  3. NITRODERM [Concomitant]
  4. MORPHINE [Concomitant]
  5. LEVOTHYROXINE SODIUM [Concomitant]
  6. INNOHEP	/00889602/ [Concomitant]
  7. SOLUPRED /00016209/ [Concomitant]
  8. OSTRAM-VIT.D3 [Concomitant]
  9. CELIPROLOL [Concomitant]

REACTIONS (6)
  - DRUG INEFFECTIVE [None]
  - FATIGUE [None]
  - MALAISE [None]
  - MALIGNANT NEOPLASM PROGRESSION [None]
  - PAIN [None]
  - PANCREATIC CARCINOMA [None]
